FAERS Safety Report 6730774-6 (Version None)
Quarter: 2010Q2

REPORT INFORMATION
  Report Type: 
  Country: None (occurrence: None)
  Receive Date: 20100518
  Receipt Date: 20100512
  Transmission Date: 20101027
  Serious: Yes (Death, Hospitalization, Disabling)
  Sender: FDA-Public Use
  Company Number: 10282036

PATIENT
  Age: 63 Year
  Sex: Female

DRUGS (2)
  1. TAXOL [Suspect]
     Indication: MALIGNANT PERITONEAL NEOPLASM
     Route: 042
     Dates: start: 19990605, end: 19991101
  2. PARAPLATIN [Suspect]
     Indication: MALIGNANT PERITONEAL NEOPLASM
     Route: 042
     Dates: start: 19990605, end: 19990915

REACTIONS (2)
  - NEOPLASM MALIGNANT [None]
  - SCLERODERMA [None]
